FAERS Safety Report 13445940 (Version 1)
Quarter: 2017Q2

REPORT INFORMATION
  Report Type: Spontaneous
  Country: US (occurrence: US)
  Receive Date: 20170417
  Receipt Date: 20170417
  Transmission Date: 20170830
  Serious: No
  Sender: FDA-Public Use
  Company Number: US-LUPIN PHARMACEUTICALS INC.-E2B_00007379

PATIENT
  Sex: Male
  Weight: 95.25 kg

DRUGS (1)
  1. NIACIN EXTENDED RELEASE TABLET USP 500 MG [Suspect]
     Active Substance: NIACIN
     Indication: PRODUCT USED FOR UNKNOWN INDICATION
     Dosage: 500 MG,QD,
     Route: 048

REACTIONS (2)
  - Medication residue present [Unknown]
  - No adverse event [Unknown]
